FAERS Safety Report 18891630 (Version 1)
Quarter: 2021Q1

REPORT INFORMATION
  Report Type: Spontaneous
  Country: US (occurrence: US)
  Receive Date: 20210215
  Receipt Date: 20210215
  Transmission Date: 20210420
  Serious: No
  Sender: FDA-Public Use
  Company Number: US-009507513-2102USA001096

PATIENT
  Sex: Male

DRUGS (6)
  1. REMERON [Suspect]
     Active Substance: MIRTAZAPINE
     Indication: OBSESSIVE-COMPULSIVE DISORDER
     Dosage: UNK (UNKNOWN TIME FRAME)
  2. CITALOPRAM [Suspect]
     Active Substance: CITALOPRAM HYDROBROMIDE
     Dosage: 2 WEEKS
  3. LORAZEPAM. [Suspect]
     Active Substance: LORAZEPAM
     Dosage: UNKNOWN TIME FRAME
  4. PAROXETINE. [Suspect]
     Active Substance: PAROXETINE
     Dosage: 4 WEEKS
  5. CLOMIPRAMINE HYDROCHLORIDE. [Suspect]
     Active Substance: CLOMIPRAMINE HYDROCHLORIDE
     Dosage: UNKNOWN TIME FRAME
  6. FLUOXETINE [Suspect]
     Active Substance: FLUOXETINE HYDROCHLORIDE
     Dosage: SEVERAL WEEKS

REACTIONS (2)
  - Adverse event [Unknown]
  - Product use in unapproved indication [Unknown]
